FAERS Safety Report 4513495-X (Version None)
Quarter: 2004Q4

REPORT INFORMATION
  Report Type: 
  Country: None (occurrence: None)
  Receive Date: 20041130
  Receipt Date: 20041118
  Transmission Date: 20050328
  Serious: Yes (Other)
  Sender: FDA-Public Use
  Company Number: CA-JNJFOC-20041102862

PATIENT
  Sex: Female

DRUGS (5)
  1. TOPAMAX [Suspect]
     Indication: PAIN
     Dosage: DOSE TITRATED UP TO 100 MG (FREQUENCY NOT PROVIDED)
     Route: 049
  2. TYLENOL W/ CODEINE NO. 3 [Concomitant]
     Indication: PAIN
     Dosage: 1 TAB EVERY 4 HOURS AS NECESSARY.
     Route: 049
  3. HYDROMORPHONE [Concomitant]
     Indication: PAIN
  4. VOLTAREN [Concomitant]
     Indication: ARTHRITIS
  5. IMOVANE [Concomitant]

REACTIONS (4)
  - ARTHRALGIA [None]
  - JOINT SWELLING [None]
  - SERUM SICKNESS [None]
  - SYNOVITIS [None]
